FAERS Safety Report 10182253 (Version 3)
Quarter: 2020Q2

REPORT INFORMATION
  Report Type: Spontaneous
  Country: PT (occurrence: PT)
  Receive Date: 20140520
  Receipt Date: 20200608
  Transmission Date: 20200713
  Serious: Yes (Hospitalization)
  Sender: FDA-Public Use
  Company Number: PT-ACCORD-023278

PATIENT
  Age: 70 Year
  Sex: Male

DRUGS (6)
  1. SIMVASTATIN. [Concomitant]
     Active Substance: SIMVASTATIN
  2. ACETYLSALICYLIC ACID [Concomitant]
     Active Substance: ASPIRIN
  3. CARVEDILOL. [Concomitant]
     Active Substance: CARVEDILOL
  4. CLOPIDOGREL [Suspect]
     Active Substance: CLOPIDOGREL BISULFATE
     Indication: STENT PLACEMENT
     Dosage: ONE WEEK LATER CONTINUOUS ADMINISTRATION GIVEN AND 24 HOURS AFTER SINGLE DOSE GIVEN.
  5. INDAPAMIDE/INDAPAMIDE HEMIHYDRATE [Concomitant]
     Active Substance: INDAPAMIDE
  6. RAMIPRIL. [Concomitant]
     Active Substance: RAMIPRIL

REACTIONS (5)
  - Arthralgia [Recovered/Resolved]
  - Dermatitis [Recovered/Resolved]
  - Rash erythematous [Recovered/Resolved]
  - Type IV hypersensitivity reaction [Recovered/Resolved]
  - Swelling [Recovered/Resolved]
